FAERS Safety Report 21551378 (Version 2)
Quarter: 2022Q4

REPORT INFORMATION
  Report Type: Spontaneous
  Country: CN (occurrence: CN)
  Receive Date: 20221103
  Receipt Date: 20221115
  Transmission Date: 20230112
  Serious: Yes (Other)
  Sender: FDA-Public Use
  Company Number: CN-GILEAD-2022-0603523

PATIENT
  Age: 68 Year
  Sex: Male

DRUGS (5)
  1. HEPSERA [Suspect]
     Active Substance: ADEFOVIR DIPIVOXIL
     Indication: Hepatitis B
     Dosage: 10 MG, QD
     Route: 065
  2. LAMIVUDINE [Concomitant]
     Active Substance: LAMIVUDINE
     Dosage: 50 MG
     Route: 048
  3. ZOLEDRONIC ACID [Concomitant]
     Active Substance: ZOLEDRONIC ACID
  4. CALCIUM CARBONATE [Concomitant]
     Active Substance: CALCIUM CARBONATE
  5. ALFACALCIDOL [Concomitant]
     Active Substance: ALFACALCIDOL

REACTIONS (2)
  - Osteomalacia [Unknown]
  - Fanconi syndrome [Unknown]
